FAERS Safety Report 7770908-8 (Version None)
Quarter: 2011Q3

REPORT INFORMATION
  Report Type: 
  Country: None (occurrence: None)
  Receive Date: 20110922
  Receipt Date: 20100930
  Transmission Date: 20111222
  Serious: Yes (Hospitalization)
  Sender: FDA-Public Use
  Company Number: US-ASTRAZENECA-2010SE46072

PATIENT
  Age: 30 Year
  Sex: Female

DRUGS (2)
  1. SEROQUEL [Suspect]
     Dosage: 20 TABLETS
     Route: 048
  2. SEROQUEL [Suspect]
     Indication: BIPOLAR DISORDER
     Route: 048

REACTIONS (2)
  - WEIGHT INCREASED [None]
  - OVERDOSE [None]
